FAERS Safety Report 8291220 (Version 5)
Quarter: 2013Q1

REPORT INFORMATION
  Report Type: Spontaneous
  Country: BR (occurrence: BR)
  Receive Date: 20111214
  Receipt Date: 20130225
  Transmission Date: 20140127
  Serious: Yes (Life-Threatening, Other)
  Sender: FDA-Public Use
  Company Number: BR-ROCHE-1020429

PATIENT
  Sex: Female

DRUGS (5)
  1. XOLAIR [Suspect]
     Indication: ASTHMA
     Dosage: 2 DF, 2 AMPOULES EACH 15 DAYS.
     Route: 065
     Dates: start: 20110825
  2. XOLAIR [Suspect]
     Dosage: 2 DF, 2 AMPOULES EACH 15 DAYS.
     Route: 065
     Dates: start: 20110915
  3. XOLAIR [Suspect]
     Route: 065
     Dates: start: 20111207
  4. ALENIA (BRAZIL) [Concomitant]
     Route: 065
     Dates: start: 2010
  5. DRAMIN [Concomitant]

REACTIONS (10)
  - Headache [Recovering/Resolving]
  - Pain [Recovering/Resolving]
  - Migraine [Recovering/Resolving]
  - Uterine polyp [Not Recovered/Not Resolved]
  - Malaise [Not Recovered/Not Resolved]
  - Dyspnoea [Recovering/Resolving]
  - Asphyxia [Recovering/Resolving]
  - Fatigue [Recovering/Resolving]
  - Oropharyngeal pain [Recovering/Resolving]
  - Influenza [Recovering/Resolving]
